FAERS Safety Report 6015828-4 (Version None)
Quarter: 2008Q4

REPORT INFORMATION
  Report Type: 
  Country: None (occurrence: None)
  Receive Date: 20081222
  Receipt Date: 20081219
  Transmission Date: 20090506
  Serious: Yes (Hospitalization, Congenital Anomaly)
  Sender: FDA-Public Use
  Company Number: A0687270A

PATIENT
  Sex: Male
  Weight: 4.2 kg

DRUGS (9)
  1. PAXIL [Suspect]
     Indication: DEPRESSION
     Dosage: 20MG TWICE PER DAY
     Dates: start: 20020201, end: 20030301
  2. APAP TAB [Concomitant]
     Dates: start: 20020719, end: 20020719
  3. ANTACID TAB [Concomitant]
     Dates: start: 20020719, end: 20020719
  4. TERAZOL 1 [Concomitant]
     Dates: start: 20020917
  5. VITAMIN TAB [Concomitant]
  6. AMBIEN [Concomitant]
     Indication: SLEEP DISORDER
     Dosage: 5MG AT NIGHT
     Dates: start: 20020216, end: 20020409
  7. CERUMENEX [Concomitant]
     Dates: start: 20020409
  8. AUGMENTIN '500' [Concomitant]
     Indication: EAR INFECTION
     Dates: start: 20020409
  9. IBUPROFEN [Concomitant]
     Dates: start: 20020409

REACTIONS (5)
  - ATRIAL SEPTAL DEFECT [None]
  - DRUG EXPOSURE DURING PREGNANCY [None]
  - PATENT DUCTUS ARTERIOSUS [None]
  - RESPIRATORY DISTRESS [None]
  - VENTRICULAR SEPTAL DEFECT [None]
